FAERS Safety Report 4674163-7 (Version None)
Quarter: 2005Q2

REPORT INFORMATION
  Report Type: 
  Country: None (occurrence: None)
  Receive Date: 20050524
  Receipt Date: 20050510
  Transmission Date: 20051028
  Serious: Yes (Hospitalization, Other)
  Sender: FDA-Public Use
  Company Number: 2005-01609

PATIENT
  Age: 37 Year
  Sex: Male

DRUGS (3)
  1. COLCHICINE ( WATSON LABORATORIES) (COLCHICINE) TABLET, 0.6 MG [Suspect]
     Indication: PERICARDITIS
     Dosage: ORAL
     Route: 048
     Dates: start: 20050425, end: 20050509
  2. PREDNISONE TAB [Concomitant]
  3. LOTREL [Concomitant]

REACTIONS (7)
  - ABDOMINAL PAIN [None]
  - GASTRITIS [None]
  - GASTROOESOPHAGEAL REFLUX DISEASE [None]
  - NAUSEA [None]
  - OFF LABEL USE [None]
  - VOMITING [None]
  - WHITE BLOOD CELL COUNT INCREASED [None]
